FAERS Safety Report 7717740-9 (Version None)
Quarter: 2011Q3

REPORT INFORMATION
  Report Type: 
  Country: None (occurrence: None)
  Receive Date: 20110830
  Receipt Date: 20110823
  Transmission Date: 20111222
  Serious: Yes (Disabling)
  Sender: FDA-Public Use
  Company Number: US-AMGEN-USASP2011043115

PATIENT
  Age: 61 Year
  Sex: Female

DRUGS (6)
  1. PEGFILGRASTIM [Suspect]
     Indication: BREAST CANCER
     Dosage: 6 MG, PER CHEMO REGIM
     Route: 058
     Dates: start: 20110304
  2. PACLITAXEL [Suspect]
     Indication: BREAST CANCER
     Dosage: 80 MG/M2, PER CHEMO REGIM
     Dates: start: 20110304, end: 20110721
  3. PACLITAXEL [Suspect]
     Dosage: DOSE REDUCED 20% TWICE PRIOR TO CYCLE 8
     Route: 042
     Dates: start: 20110722, end: 20110727
  4. BEVACIZUMAB [Suspect]
     Indication: BREAST CANCER
     Dosage: BLINDED
     Route: 042
     Dates: start: 20110304
  5. DOXORUBICIN HCL [Suspect]
     Indication: BREAST CANCER
     Dosage: 60 MG/M2, PER CHEMO REGIM
     Route: 042
     Dates: start: 20110304, end: 20110727
  6. CYCLOPHOSPHAMIDE [Suspect]
     Indication: BREAST CANCER
     Dosage: 600 MG/M2, PER CHEMO REGIM
     Route: 042
     Dates: start: 20110304, end: 20110727

REACTIONS (1)
  - PERIPHERAL SENSORY NEUROPATHY [None]
